FAERS Safety Report 23382661 (Version 1)
Quarter: 2024Q1

REPORT INFORMATION
  Report Type: Spontaneous
  Country: FR (occurrence: FR)
  Receive Date: 20240109
  Receipt Date: 20240109
  Transmission Date: 20240410
  Serious: Yes (Hospitalization)
  Sender: FDA-Public Use
  Company Number: None

PATIENT
  Age: 77 Year
  Sex: Female

DRUGS (2)
  1. CARBOPLATIN [Suspect]
     Active Substance: CARBOPLATIN
     Indication: Pleural neoplasm
     Dosage: UNK
     Route: 042
     Dates: start: 202210, end: 202301
  2. ALIMTA [Suspect]
     Active Substance: PEMETREXED DISODIUM
     Indication: Pleural neoplasm
     Dosage: NOT SPECIFIED
     Route: 042
     Dates: start: 202210, end: 202301

REACTIONS (1)
  - Nephropathy [Not Recovered/Not Resolved]

NARRATIVE: CASE EVENT DATE: 20230501
